FAERS Safety Report 9144277 (Version 2)
Quarter: 2013Q1

REPORT INFORMATION
  Report Type: Report from Study
  Country: BE (occurrence: BE)
  Receive Date: 20130306
  Receipt Date: 20130315
  Transmission Date: 20140127
  Serious: Yes (Other)
  Sender: FDA-Public Use
  Company Number: BE-ROCHE-1197600

PATIENT
  Age: 63 Year
  Sex: Female
  Weight: 111.96 kg

DRUGS (3)
  1. RANIBIZUMAB [Suspect]
     Indication: RETINAL VEIN OCCLUSION
     Route: 050
     Dates: start: 20121123
  2. RANIBIZUMAB [Suspect]
     Route: 050
     Dates: start: 20121221, end: 20121221
  3. LOSARTAN [Concomitant]
     Route: 065

REACTIONS (2)
  - Hypertension [Recovering/Resolving]
  - Hypertension [Recovering/Resolving]
